FAERS Safety Report 20030254 (Version 1)
Quarter: 2021Q4

REPORT INFORMATION
  Report Type: Other
  Country: JP (occurrence: JP)
  Receive Date: 20211103
  Receipt Date: 20211103
  Transmission Date: 20220303
  Serious: Yes (Death, Hospitalization, Other)
  Sender: FDA-Public Use
  Company Number: JP-CHUGAI-A2021003152ROCHE

PATIENT
  Age: 69 Year

DRUGS (22)
  1. ATEZOLIZUMAB [Suspect]
     Active Substance: ATEZOLIZUMAB
     Indication: Non-small cell lung cancer
     Route: 041
     Dates: start: 20201020, end: 20201221
  2. BEVACIZUMAB [Suspect]
     Active Substance: BEVACIZUMAB
     Indication: Non-small cell lung cancer
     Dosage: DOSE INTERVAL UNCERTAINTY
     Route: 041
     Dates: start: 20201020, end: 20201221
  3. CARBOPLATIN [Suspect]
     Active Substance: CARBOPLATIN
     Indication: Non-small cell lung cancer
     Dosage: DOSE INTERVAL UNCERTAINTY
     Route: 041
     Dates: start: 20201020, end: 20201110
  4. CARBOPLATIN [Suspect]
     Active Substance: CARBOPLATIN
     Dosage: DOSE INTERVAL UNCERTAINTY
     Route: 041
     Dates: start: 20201201, end: 20201221
  5. PACLITAXEL [Suspect]
     Active Substance: PACLITAXEL
     Indication: Non-small cell lung cancer
     Dosage: DOSE INTERVAL UNCERTAINTY
     Route: 041
     Dates: start: 20201020, end: 20201110
  6. PACLITAXEL [Suspect]
     Active Substance: PACLITAXEL
     Dosage: DOSE INTERVAL UNCERTAINTY
     Route: 041
     Dates: start: 20201201, end: 20201221
  7. PREDONINE [Suspect]
     Active Substance: PREDNISOLONE
     Indication: Rash
     Dosage: DOSE INTERVAL UNCERTAINTY
     Route: 048
     Dates: start: 20201217, end: 20201221
  8. PREDONINE [Suspect]
     Active Substance: PREDNISOLONE
     Dosage: DOSE INTERVAL UNCERTAINTY
     Route: 048
     Dates: start: 20201222, end: 20201225
  9. PREDONINE [Suspect]
     Active Substance: PREDNISOLONE
     Dosage: DOSE INTERVAL UNCERTAINTY
     Route: 048
     Dates: start: 20201226, end: 20201229
  10. PREDONINE [Suspect]
     Active Substance: PREDNISOLONE
     Dosage: DOSE INTERVAL UNCERTAINTY
     Route: 048
     Dates: start: 20201230
  11. PREDONINE [Suspect]
     Active Substance: PREDNISOLONE
     Dosage: DOSE INTERVAL UNCERTAINTY
     Route: 048
     Dates: end: 20210204
  12. GILOTRIF [Concomitant]
     Active Substance: AFATINIB
     Indication: Non-small cell lung cancer
     Dosage: DOSE INTERVAL UNCERTAINTY
     Route: 048
     Dates: start: 20180523
  13. LOSARTAN POTASSIUM [Concomitant]
     Active Substance: LOSARTAN POTASSIUM
     Indication: Hypertension
     Dosage: DOSE INTERVAL UNCERTAINTY
     Route: 048
     Dates: end: 202101
  14. AMLODIPINE [Concomitant]
     Active Substance: AMLODIPINE BESYLATE
     Indication: Hypertension
     Dosage: DOSE INTERVAL UNCERTAINTY
     Route: 048
     Dates: start: 20190423
  15. PENTOSAN POLYSULFATE SODIUM [Concomitant]
     Active Substance: PENTOSAN POLYSULFATE SODIUM
     Indication: Dermatitis
     Dosage: DOSAGE: PROPER DOSE IN A DAY
     Route: 003
     Dates: start: 20200707
  16. EVIPROSTAT (JAPAN) [Concomitant]
     Indication: Benign prostatic hyperplasia
     Dosage: DOSE INTERVAL UNCERTAINTY
     Route: 048
     Dates: start: 20190319, end: 20210212
  17. ELSAMET [Concomitant]
     Indication: Benign prostatic hyperplasia
     Route: 048
  18. PEGFILGRASTIM [Concomitant]
     Active Substance: PEGFILGRASTIM
     Indication: Prophylaxis
     Dosage: DOSE INTERVAL UNCERTAINTY
     Route: 065
     Dates: start: 20201112
  19. NEXIUM [Concomitant]
     Active Substance: ESOMEPRAZOLE MAGNESIUM
     Dosage: DOSE INTERVAL UNCERTAINTY
     Route: 048
     Dates: start: 20201218
  20. LYRICA [Concomitant]
     Active Substance: PREGABALIN
     Indication: Arthralgia
     Dosage: DOSE INTERVAL UNCERTAINTY
     Route: 048
     Dates: start: 20201103
  21. MAGNESIUM OXIDE [Concomitant]
     Active Substance: MAGNESIUM OXIDE
     Dosage: DOSE INTERVAL UNCERTAINTY
     Route: 048
     Dates: start: 20201217
  22. FEXOFENADINE HYDROCHLORIDE [Concomitant]
     Active Substance: FEXOFENADINE HYDROCHLORIDE
     Indication: Dermatitis
     Route: 048
     Dates: start: 20201210

REACTIONS (22)
  - Cytomegalovirus enterocolitis [Recovered/Resolved]
  - Rash [Recovering/Resolving]
  - Febrile neutropenia [Recovered/Resolved]
  - Multiple organ dysfunction syndrome [Fatal]
  - Thrombocytopenia [Not Recovered/Not Resolved]
  - Cytomegalovirus hepatitis [Recovering/Resolving]
  - Metastases to lung [Unknown]
  - Enterocolitis bacterial [Unknown]
  - Diarrhoea [Unknown]
  - Drug eruption [Unknown]
  - Hepatic failure [Unknown]
  - Arthralgia [Unknown]
  - Constipation [Unknown]
  - Gastritis [Unknown]
  - Oral candidiasis [Unknown]
  - Hypothyroidism [Unknown]
  - Hypocalcaemia [Unknown]
  - Peripheral sensory neuropathy [Unknown]
  - Stomatitis [Unknown]
  - Myalgia [Unknown]
  - Arthralgia [Unknown]
  - Peripheral swelling [Unknown]

NARRATIVE: CASE EVENT DATE: 20201020
